FAERS Safety Report 22372861 (Version 2)
Quarter: 2023Q2

REPORT INFORMATION
  Report Type: Spontaneous
  Country: US (occurrence: US)
  Receive Date: 20230526
  Receipt Date: 20230530
  Transmission Date: 20230722
  Serious: Yes (Hospitalization)
  Sender: FDA-Public Use
  Company Number: ENDG23-02357

PATIENT
  Sex: Female

DRUGS (12)
  1. PHENOBARBITAL [Suspect]
     Active Substance: PHENOBARBITAL
     Indication: Seizure
     Dosage: UNK UNKNOWN, UNKNOWN
     Route: 065
  2. DILANTIN                           /00017401/ [Concomitant]
     Indication: Seizure
     Dosage: UNK UNKNOWN, UNKNOWN
     Route: 065
  3. LEVOTHYROXINE [Concomitant]
     Active Substance: LEVOTHYROXINE
     Indication: Thyroid disorder
     Dosage: UNK UNKNOWN, UNKNOWN
     Route: 065
  4. LISINOPRIL [Concomitant]
     Active Substance: LISINOPRIL
     Indication: Hypertension
     Dosage: UNK UNKNOWN, UNKNOWN
     Route: 065
  5. LIDODERM [Concomitant]
     Active Substance: LIDOCAINE
     Indication: Pain in extremity
     Dosage: UNK UNKNOWN, UNKNOWN (12 HOURS ON AND 12 HOURS OFF)
     Route: 065
     Dates: start: 2010
  6. LIDODERM [Concomitant]
     Active Substance: LIDOCAINE
     Indication: Back pain
  7. LIDODERM [Concomitant]
     Active Substance: LIDOCAINE
     Indication: Back disorder
  8. LIDOCAINE [Concomitant]
     Active Substance: LIDOCAINE
     Indication: Pain in extremity
     Dosage: UNK UNKNOWN, UNKNOWN
     Route: 065
     Dates: start: 202301
  9. LIDOCAINE [Concomitant]
     Active Substance: LIDOCAINE
     Indication: Back pain
     Dosage: UNK UNKNOWN, UNKNOWN
     Route: 065
     Dates: start: 202304
  10. LIDOCAINE [Concomitant]
     Active Substance: LIDOCAINE
     Indication: Back disorder
  11. OXYCODONE [Concomitant]
     Active Substance: OXYCODONE
     Indication: Product used for unknown indication
     Dosage: UNK UNKNOWN, UNKNOWN
     Route: 065
  12. VITAMINS                           /00067501/ [Concomitant]
     Indication: Product used for unknown indication
     Dosage: UNK UNKNOWN, UNKNOWN
     Route: 065

REACTIONS (4)
  - Chest discomfort [Unknown]
  - Ill-defined disorder [Unknown]
  - Dyspnoea [Unknown]
  - Product substitution issue [Unknown]

NARRATIVE: CASE EVENT DATE: 20230101
